FAERS Safety Report 8669602 (Version 2)
Quarter: 2012Q4

REPORT INFORMATION
  Report Type: 
  Country: US (occurrence: US)
  Receive Date: 20120718
  Receipt Date: 20121106
  Transmission Date: 20130627
  Serious: Yes (Hospitalization)
  Sender: FDA-Public Use
  Company Number: US-BAYER-2012-070972

PATIENT
  Age: 23 Year
  Sex: Female
  Weight: 52.15 kg

DRUGS (8)
  1. OCELLA [Suspect]
     Dosage: UNK
     Dates: start: 20080821, end: 20101227
  2. YASMIN [Suspect]
  3. IBUPROFEN [Concomitant]
  4. PROZAC [Concomitant]
     Indication: ANXIETY
     Dosage: UNK
     Dates: start: 200002
  5. KAPIDEX [Concomitant]
     Indication: SOUR STOMACH
     Dosage: UNK
     Dates: start: 200901, end: 201010
  6. METAXALONE [Concomitant]
  7. FLUOXETINE [Concomitant]
  8. ALEVE [Concomitant]

REACTIONS (6)
  - Cholecystitis [None]
  - Cholelithiasis [None]
  - Injury [None]
  - Pain [None]
  - Fear [None]
  - Pain [None]
